FAERS Safety Report 20338229 (Version 1)
Quarter: 2022Q1

REPORT INFORMATION
  Report Type: Report from Study
  Country: US (occurrence: US)
  Receive Date: 20220115
  Receipt Date: 20220115
  Transmission Date: 20220423
  Serious: Yes (Other)
  Sender: FDA-Public Use
  Company Number: US-ABBVIE-22K-163-4232679-00

PATIENT
  Sex: Female

DRUGS (1)
  1. HUMIRA [Suspect]
     Active Substance: ADALIMUMAB
     Indication: Colitis ulcerative
     Dosage: CF
     Route: 058

REACTIONS (5)
  - Large intestine perforation [Unknown]
  - Sternal fracture [Unknown]
  - Gastrointestinal wall thinning [Unknown]
  - Road traffic accident [Unknown]
  - COVID-19 [Unknown]
